FAERS Safety Report 9226060 (Version 1)
Quarter: 2013Q2

REPORT INFORMATION
  Report Type: Spontaneous
  Country: PT (occurrence: PT)
  Receive Date: 20130411
  Receipt Date: 20130411
  Transmission Date: 20140414
  Serious: Yes (Other)
  Sender: FDA-Public Use
  Company Number: PT-ACTAVIS-2013-05870

PATIENT
  Age: 17 Year
  Sex: Male

DRUGS (3)
  1. PREDNISOLONE (UNKNOWN) [Suspect]
     Indication: AUTOIMMUNE HEPATITIS
     Dosage: 40 MG, DAILY
     Route: 065
  2. MYCOPHENOLATE MOFETIL (UNKNOWN) [Suspect]
     Indication: AUTOIMMUNE HEPATITIS
     Dosage: 20 MG/KG, DAILY
     Route: 065
  3. AZATHIOPRINE (UNKNOWN) [Suspect]
     Indication: AUTOIMMUNE HEPATITIS
     Dosage: 2 MG/KG, DAILY
     Route: 065

REACTIONS (4)
  - Growth retardation [Unknown]
  - Bone density decreased [Unknown]
  - Epiphyses delayed fusion [Unknown]
  - Diabetes mellitus inadequate control [Not Recovered/Not Resolved]
